FAERS Safety Report 9185756 (Version 1)
Quarter: 2013Q1

REPORT INFORMATION
  Report Type: Spontaneous
  Country: IN (occurrence: None)
  Receive Date: 20130321
  Receipt Date: 20130321
  Transmission Date: 20140127
  Serious: Yes (Other)
  Sender: FDA-Public Use
  Company Number: 2013/065

PATIENT
  Age: 56 Year
  Sex: Male

DRUGS (1)
  1. DIVALPROEX SODIUM [Suspect]
     Indication: GRAND MAL CONVULSION
     Route: 048

REACTIONS (17)
  - Somnolence [None]
  - Cognitive disorder [None]
  - Convulsion [None]
  - Dysarthria [None]
  - Gait disturbance [None]
  - Dysstasia [None]
  - Bradykinesia [None]
  - Muscle rigidity [None]
  - Tremor [None]
  - Cerebral atrophy [None]
  - Gliosis [None]
  - Encephalopathy [None]
  - Ammonia increased [None]
  - Anticonvulsant drug level above therapeutic [None]
  - Gaze palsy [None]
  - Balance disorder [None]
  - Postural tremor [None]
